FAERS Safety Report 14211589 (Version 2)
Quarter: 2018Q1

REPORT INFORMATION
  Report Type: Report from Study
  Country: US (occurrence: US)
  Receive Date: 20171121
  Receipt Date: 20180111
  Transmission Date: 20180508
  Serious: Yes (Other)
  Sender: FDA-Public Use
  Company Number: US-TESARO, INC.-US-2017TSO03459

PATIENT

DRUGS (2)
  1. ZEJULA [Suspect]
     Active Substance: NIRAPARIB
     Indication: OVARIAN CANCER
     Dosage: UNK
     Dates: start: 20171017
  2. ZEJULA [Suspect]
     Active Substance: NIRAPARIB
     Dosage: 100 MG, QD
     Route: 048
     Dates: start: 20171026

REACTIONS (9)
  - Nausea [Not Recovered/Not Resolved]
  - Dry mouth [Unknown]
  - Carotid artery stenosis [Unknown]
  - Pollakiuria [Unknown]
  - Heart rate increased [Not Recovered/Not Resolved]
  - Palpitations [Unknown]
  - Headache [Unknown]
  - Insomnia [Not Recovered/Not Resolved]
  - Neoplasm progression [Unknown]
